FAERS Safety Report 7791630-8 (Version None)
Quarter: 2011Q3

REPORT INFORMATION
  Report Type: 
  Country: None (occurrence: None)
  Receive Date: 20110930
  Receipt Date: 20110930
  Transmission Date: 20111222
  Serious: Yes (Other)
  Sender: FDA-Public Use
  Company Number: None

PATIENT
  Age: 67 Year
  Sex: Female
  Weight: 90.9 kg

DRUGS (2)
  1. DILTIAZEM [Suspect]
     Indication: BLOOD PRESSURE INCREASED
     Dates: start: 20110707, end: 20110721
  2. CARVEDILOL 6.25 [Suspect]
     Indication: BLOOD PRESSURE INCREASED
     Dates: start: 20110728, end: 20110803

REACTIONS (5)
  - PAIN [None]
  - DYSPNOEA [None]
  - OEDEMA PERIPHERAL [None]
  - ABDOMINAL DISTENSION [None]
  - DISCOMFORT [None]
